FAERS Safety Report 6356954-X (Version None)
Quarter: 2009Q3

REPORT INFORMATION
  Report Type: 
  Country: None (occurrence: None)
  Receive Date: 20090915
  Receipt Date: 20090901
  Transmission Date: 20100115
  Serious: Yes (Hospitalization, Other)
  Sender: FDA-Public Use
  Company Number: US-ROCHE-638273

PATIENT
  Sex: Female
  Weight: 81.6 kg

DRUGS (16)
  1. PEGASYS [Suspect]
     Dosage: DOSE: 180 MCG/0.5 ML, FORM: PRE-FILLED SYRINGE (PFS)
     Route: 058
     Dates: start: 20090306, end: 20090324
  2. NOVOLIN R [Concomitant]
  3. PREMARIN [Concomitant]
  4. NORVASC [Concomitant]
  5. LEXAPRO [Concomitant]
     Indication: DEPRESSION
     Route: 048
  6. CLONAZEPAM [Concomitant]
     Indication: ANXIETY
     Route: 048
  7. ATENOLOL [Concomitant]
  8. RIBAPAK [Concomitant]
     Route: 048
     Dates: start: 20090306, end: 20090624
  9. PRILOSEC [Concomitant]
  10. LANTUS [Concomitant]
  11. NOVOLOG [Concomitant]
  12. HYDROCHLOROTHIAZIDE [Concomitant]
  13. MIRAPEX [Concomitant]
  14. GEMFIBROZIL [Concomitant]
     Dosage: DRUG; GEMFIBRIZOL
  15. MIRTAZAPINE [Concomitant]
  16. LORATADINE [Concomitant]

REACTIONS (7)
  - DIABETES MELLITUS INADEQUATE CONTROL [None]
  - DIABETIC KETOACIDOSIS [None]
  - DISORIENTATION [None]
  - EATING DISORDER [None]
  - NAUSEA [None]
  - RED BLOOD CELL COUNT DECREASED [None]
  - VOMITING [None]
